FAERS Safety Report 16241305 (Version 1)
Quarter: 2019Q2

REPORT INFORMATION
  Report Type: Spontaneous
  Country: DK (occurrence: DK)
  Receive Date: 20190426
  Receipt Date: 20190426
  Transmission Date: 20190711
  Serious: Yes (Disabling, Other)
  Sender: FDA-Public Use
  Company Number: DK-AMGEN-DNKSP2019065264

PATIENT
  Age: 74 Year
  Sex: Male

DRUGS (2)
  1. HUMIRA [Suspect]
     Active Substance: ADALIMUMAB
     Indication: PSORIATIC ARTHROPATHY
     Dosage: DOSIS: 80 MG SUBCUTANEOUS FOLLOWED BY 40 MG EVERY 2ND WEEK
     Route: 058
     Dates: start: 20101101, end: 20110822
  2. ENBREL [Suspect]
     Active Substance: ETANERCEPT
     Indication: PSORIATIC ARTHROPATHY
     Dosage: 50 MG X 2 WEEKLY
     Route: 058
     Dates: start: 20130116, end: 20140103

REACTIONS (3)
  - Pleural fibrosis [Not Recovered/Not Resolved]
  - Pneumonia [Unknown]
  - Product use issue [Unknown]

NARRATIVE: CASE EVENT DATE: 2011
